FAERS Safety Report 12339592 (Version 1)
Quarter: 2016Q2

REPORT INFORMATION
  Report Type: Spontaneous
  Country: US (occurrence: US)
  Receive Date: 20160505
  Receipt Date: 20160505
  Transmission Date: 20160815
  Serious: No
  Sender: FDA-Public Use
  Company Number: US-AMGEN-USASP2016022196

PATIENT
  Age: 86 Year
  Sex: Male
  Weight: 84.67 kg

DRUGS (1)
  1. ARANESP [Suspect]
     Active Substance: DARBEPOETIN ALFA
     Indication: PRODUCT USED FOR UNKNOWN INDICATION
     Dosage: 50 MCG TO 150 MCG, QMO
     Route: 058
     Dates: start: 20150515, end: 20160218

REACTIONS (4)
  - Diarrhoea [Unknown]
  - Colitis [Recovering/Resolving]
  - Gastrointestinal disorder [Unknown]
  - Nausea [Recovering/Resolving]

NARRATIVE: CASE EVENT DATE: 2015
